FAERS Safety Report 11871207 (Version 1)
Quarter: 2015Q4

REPORT INFORMATION
  Report Type: Spontaneous
  Country: None (occurrence: None)
  Receive Date: 20151224
  Receipt Date: 20151224
  Transmission Date: 20160305
  Serious: No
  Sender: FDA-Public Use
  Company Number: None

PATIENT
  Age: 25 Year
  Sex: Female
  Weight: 81.65 kg

DRUGS (2)
  1. BACLOFEN. [Concomitant]
     Active Substance: BACLOFEN
  2. TYSABRI [Suspect]
     Active Substance: NATALIZUMAB

REACTIONS (4)
  - Pruritus [None]
  - Urticaria [None]
  - Throat irritation [None]
  - Swollen tongue [None]

NARRATIVE: CASE EVENT DATE: 20151223
